FAERS Safety Report 5954614-8 (Version None)
Quarter: 2008Q4

REPORT INFORMATION
  Report Type: 
  Country: None (occurrence: None)
  Receive Date: 20081117
  Receipt Date: 20081106
  Transmission Date: 20090506
  Serious: Yes (Hospitalization, Other)
  Sender: FDA-Public Use
  Company Number: IL-AMGEN-UK317597

PATIENT
  Sex: Female

DRUGS (2)
  1. NEULASTIM [Suspect]
     Indication: DRUG USE FOR UNKNOWN INDICATION
     Route: 058
  2. NEUPOGEN [Concomitant]
     Route: 058

REACTIONS (2)
  - MEDICATION ERROR [None]
  - PYREXIA [None]
